FAERS Safety Report 25741778 (Version 2)
Quarter: 2025Q3

REPORT INFORMATION
  Report Type: Spontaneous
  Country: US (occurrence: US)
  Receive Date: 20250829
  Receipt Date: 20250918
  Transmission Date: 20251020
  Serious: Yes (Other)
  Sender: VERTEX
  Company Number: US-VERTEX PHARMACEUTICALS-2025-013818

PATIENT
  Age: 54 Year
  Sex: Male

DRUGS (4)
  1. JOURNAVX [Suspect]
     Active Substance: SUZETRIGINE
     Indication: Pain
     Dosage: 100 MG, SINGLE (LOADING DOSE)
     Route: 048
     Dates: start: 20250805, end: 202508
  2. JOURNAVX [Suspect]
     Active Substance: SUZETRIGINE
     Dosage: 50 MG, BID
     Route: 048
     Dates: start: 202508, end: 20250819
  3. TESTOSTERONE [Concomitant]
     Active Substance: TESTOSTERONE
     Dosage: 200 MG, QW
     Route: 030
  4. CELEBREX [Concomitant]
     Active Substance: CELECOXIB
     Dosage: 50 MG, BID

REACTIONS (2)
  - Urticaria [Recovered/Resolved]
  - Angioedema [Recovered/Resolved]

NARRATIVE: CASE EVENT DATE: 20250817
